FAERS Safety Report 19860955 (Version 3)
Quarter: 2022Q2

REPORT INFORMATION
  Report Type: Spontaneous
  Country: US (occurrence: US)
  Receive Date: 20210921
  Receipt Date: 20220509
  Transmission Date: 20220721
  Serious: Yes (Other)
  Sender: FDA-Public Use
  Company Number: US-BEH-2021136076

PATIENT
  Age: 48 Year
  Sex: Male

DRUGS (12)
  1. IDELVION [Suspect]
     Active Substance: COAGULATION FACTOR IX RECOMBINANT HUMAN
     Indication: Factor IX deficiency
     Dosage: 6500 INTERNATIONAL UNIT, QW AND AS NEEDED
     Route: 042
     Dates: start: 20210817
  2. IDELVION [Suspect]
     Active Substance: COAGULATION FACTOR IX RECOMBINANT HUMAN
     Indication: Factor IX deficiency
     Dosage: 6500 INTERNATIONAL UNIT, QW AND AS NEEDED
     Route: 042
     Dates: start: 20210817
  3. IDELVION [Suspect]
     Active Substance: COAGULATION FACTOR IX RECOMBINANT HUMAN
     Indication: Factor IX deficiency
     Dosage: 6500 INTERNATIONAL UNIT, QW AND AS NEEDED
     Route: 042
     Dates: start: 20211215
  4. IDELVION [Suspect]
     Active Substance: COAGULATION FACTOR IX RECOMBINANT HUMAN
     Indication: Factor IX deficiency
     Dosage: 6500 INTERNATIONAL UNIT, QW AND AS NEEDED
     Route: 042
     Dates: start: 20211215
  5. IDELVION [Suspect]
     Active Substance: COAGULATION FACTOR IX RECOMBINANT HUMAN
     Dosage: 3757 INTERNATIONAL UNIT, QW
     Route: 042
     Dates: start: 20210321
  6. IDELVION [Suspect]
     Active Substance: COAGULATION FACTOR IX RECOMBINANT HUMAN
     Dosage: 3757 INTERNATIONAL UNIT, QW
     Route: 042
     Dates: start: 20210321
  7. IDELVION [Suspect]
     Active Substance: COAGULATION FACTOR IX RECOMBINANT HUMAN
     Dosage: 6500 INTERNATIONAL UNIT, PRN
     Route: 042
  8. IDELVION [Suspect]
     Active Substance: COAGULATION FACTOR IX RECOMBINANT HUMAN
     Dosage: 6500 INTERNATIONAL UNIT, PRN
     Route: 042
  9. IDELVION [Suspect]
     Active Substance: COAGULATION FACTOR IX RECOMBINANT HUMAN
     Dosage: 551 INTERNATIONAL UNIT, QW
     Route: 042
     Dates: start: 202103
  10. IDELVION [Suspect]
     Active Substance: COAGULATION FACTOR IX RECOMBINANT HUMAN
     Dosage: 551 INTERNATIONAL UNIT, QW
     Route: 042
     Dates: start: 202103
  11. IDELVION [Suspect]
     Active Substance: COAGULATION FACTOR IX RECOMBINANT HUMAN
     Dosage: 2011 INTERNATIONAL UNIT, QW
     Route: 042
     Dates: start: 202103
  12. IDELVION [Suspect]
     Active Substance: COAGULATION FACTOR IX RECOMBINANT HUMAN
     Dosage: 2011 INTERNATIONAL UNIT, QW
     Route: 042
     Dates: start: 202103

REACTIONS (8)
  - Haemorrhage [Recovered/Resolved]
  - Haemorrhage [Unknown]
  - Haemorrhage [Unknown]
  - Haemorrhage [Unknown]
  - Haemorrhage [Unknown]
  - Haemorrhage [Unknown]
  - Haemorrhage [Unknown]
  - Haemorrhage [Unknown]

NARRATIVE: CASE EVENT DATE: 20210906
